FAERS Safety Report 7862014-9 (Version None)
Quarter: 2011Q4

REPORT INFORMATION
  Report Type: 
  Country: None (occurrence: None)
  Receive Date: 20111027
  Receipt Date: 20101122
  Transmission Date: 20120403
  Serious: No
  Sender: FDA-Public Use
  Company Number: US-AMGEN-USASP2010005931

PATIENT
  Age: 20 Year
  Sex: Female
  Weight: 49.887 kg

DRUGS (1)
  1. ENBREL [Suspect]
     Indication: PSORIASIS
     Dosage: 50 MG, 2 TIMES/WK
     Dates: start: 20100902

REACTIONS (2)
  - LOCAL REACTION [None]
  - PHARYNGITIS STREPTOCOCCAL [None]
